FAERS Safety Report 25739386 (Version 1)
Quarter: 2025Q3

REPORT INFORMATION
  Report Type: Spontaneous
  Country: EU (occurrence: EU)
  Receive Date: 20250829
  Receipt Date: 20250829
  Transmission Date: 20251021
  Serious: Yes (Other)
  Sender: AUROBINDO
  Company Number: EU-ASTRAZENECA-202508EEA010110IT

PATIENT

DRUGS (6)
  1. FULVESTRANT [Suspect]
     Active Substance: FULVESTRANT
     Indication: Hormone receptor positive breast cancer
     Route: 065
  2. FULVESTRANT [Suspect]
     Active Substance: FULVESTRANT
     Indication: Human epidermal growth factor receptor negative
  3. FULVESTRANT [Suspect]
     Active Substance: FULVESTRANT
     Indication: Breast cancer metastatic
  4. TRUQAP [Suspect]
     Active Substance: CAPIVASERTIB
     Indication: Hormone receptor positive breast cancer
     Route: 065
  5. TRUQAP [Suspect]
     Active Substance: CAPIVASERTIB
     Indication: Human epidermal growth factor receptor negative
  6. TRUQAP [Suspect]
     Active Substance: CAPIVASERTIB
     Indication: Breast cancer metastatic

REACTIONS (1)
  - Hyperglycaemia [Unknown]
